FAERS Safety Report 10049360 (Version 1)
Quarter: 2014Q2

REPORT INFORMATION
  Report Type: Spontaneous
  Country: US (occurrence: US)
  Receive Date: 20140401
  Receipt Date: 20140401
  Transmission Date: 20141212
  Serious: Yes (Other)
  Sender: FDA-Public Use
  Company Number: US-AMGEN-USASP2014021679

PATIENT
  Age: 73 Year
  Sex: Female

DRUGS (6)
  1. PROLIA [Suspect]
     Indication: OSTEOPOROSIS POSTMENOPAUSAL
     Dosage: UNK
     Route: 065
     Dates: start: 201312
  2. HYDROCODONE [Concomitant]
     Dosage: 7.5 MG, TID
  3. NAPROXEN [Concomitant]
     Dosage: UNK UNK, TID
  4. B12                                /00056201/ [Concomitant]
  5. CALCIUM [Concomitant]
  6. VITAMIN D                          /00107901/ [Concomitant]

REACTIONS (8)
  - Stress fracture [Unknown]
  - Femur fracture [Unknown]
  - Walking aid user [Unknown]
  - Pain [Unknown]
  - Bone pain [Unknown]
  - Back pain [Unknown]
  - Arthralgia [Unknown]
  - Joint crepitation [Unknown]
